FAERS Safety Report 16849232 (Version 1)
Quarter: 2019Q4

REPORT INFORMATION
  Report Type: Spontaneous
  Country: US (occurrence: US)
  Receive Date: 20190924
  Receipt Date: 20190924
  Transmission Date: 20200122
  Serious: Yes (Hospitalization)
  Sender: FDA-Public Use
  Company Number: None

PATIENT
  Age: 34 Year
  Sex: Female

DRUGS (2)
  1. PULMOZYME [Suspect]
     Active Substance: DORNASE ALFA
     Indication: CYSTIC FIBROSIS
     Route: 055
  2. PULMOZYME [Concomitant]
     Active Substance: DORNASE ALFA
     Dates: start: 20150721

REACTIONS (3)
  - Condition aggravated [None]
  - Hand fracture [None]
  - Cystic fibrosis [None]

NARRATIVE: CASE EVENT DATE: 20190912
